FAERS Safety Report 7790450-8 (Version None)
Quarter: 2011Q3

REPORT INFORMATION
  Report Type: 
  Country: None (occurrence: None)
  Receive Date: 20110930
  Receipt Date: 20110928
  Transmission Date: 20111222
  Serious: Yes (Other)
  Sender: FDA-Public Use
  Company Number: CA-NAPPMUNDI-CAN-2011-0002151

PATIENT
  Age: 45 Year
  Sex: Male

DRUGS (3)
  1. ALCOHOL [Suspect]
     Indication: PRODUCT USED FOR UNKNOWN INDICATION
     Route: 048
  2. OXYCODONE HYDROCHLORIDE [Suspect]
     Indication: PRODUCT USED FOR UNKNOWN INDICATION
  3. OXYCODONE HYDROCHLORIDE [Suspect]
     Indication: PAIN
     Route: 048

REACTIONS (3)
  - SUICIDAL IDEATION [None]
  - DRUG DEPENDENCE [None]
  - SUBSTANCE ABUSE [None]
